FAERS Safety Report 20530489 (Version 1)
Quarter: 2022Q1

REPORT INFORMATION
  Report Type: Report from Study
  Country: US (occurrence: US)
  Receive Date: 20220301
  Receipt Date: 20220301
  Transmission Date: 20220423
  Serious: Yes (Hospitalization, Other)
  Sender: FDA-Public Use
  Company Number: US-GILEAD-2022-0571413

PATIENT
  Age: 13 Year
  Sex: Male

DRUGS (1)
  1. AZTREONAM LYSINE [Suspect]
     Active Substance: AZTREONAM LYSINE
     Indication: Lung disorder
     Dosage: UNK, TID 28 DAYS ON, 28 DAYS OFF
     Route: 065
     Dates: start: 20210703

REACTIONS (2)
  - Scoliosis surgery [Not Recovered/Not Resolved]
  - Off label use [Unknown]
